FAERS Safety Report 9174768 (Version 1)
Quarter: 2013Q1

REPORT INFORMATION
  Report Type: Spontaneous
  Country: US (occurrence: US)
  Receive Date: 20130320
  Receipt Date: 20130320
  Transmission Date: 20140127
  Serious: Yes (Other)
  Sender: FDA-Public Use
  Company Number: US-ELI_LILLY_AND_COMPANY-US201303002680

PATIENT
  Sex: Female

DRUGS (4)
  1. CYMBALTA [Suspect]
     Indication: DEPRESSION
     Dosage: 60 MG, UNK
  2. CYMBALTA [Suspect]
     Dosage: 40 MG, UNK
  3. CYMBALTA [Suspect]
     Dosage: 60 MG, UNK
  4. OLANZAPINE [Concomitant]

REACTIONS (2)
  - Electrocardiogram QT prolonged [Unknown]
  - Suicidal ideation [Unknown]
